FAERS Safety Report 13558329 (Version 9)
Quarter: 2017Q3

REPORT INFORMATION
  Report Type: Report from Study
  Country: US (occurrence: US)
  Receive Date: 20170518
  Receipt Date: 20170929
  Transmission Date: 20171127
  Serious: Yes (Hospitalization, Other)
  Sender: FDA-Public Use
  Company Number: US-HORIZON-ACT-0081-2017

PATIENT
  Age: 9 Year
  Sex: Male

DRUGS (5)
  1. SPORANOX [Concomitant]
     Active Substance: ITRACONAZOLE
     Dosage: 10 MG/ML 12 ML QD
  2. ACTIMMUNE [Suspect]
     Active Substance: INTERFERON GAMMA-1B
     Indication: CHRONIC GRANULOMATOUS DISEASE
     Dosage: 25 ?G THREE TIMES WEEKLY
     Dates: start: 20100816, end: 20170731
  3. BACTRIM [Concomitant]
     Active Substance: SULFAMETHOXAZOLE\TRIMETHOPRIM
     Dosage: 200 MG/40, 7.5 ML BID
  4. PENTASA [Concomitant]
     Active Substance: MESALAMINE
  5. PREDNISONE. [Concomitant]
     Active Substance: PREDNISONE
     Dosage: 5 TABLETS (5 MG) A DAY
     Route: 048

REACTIONS (12)
  - Insomnia [Unknown]
  - Anaemia [Unknown]
  - Abdominal pain upper [Recovering/Resolving]
  - Malaise [Unknown]
  - Crohn^s disease [Unknown]
  - Gastrointestinal inflammation [Unknown]
  - Clostridium test positive [Not Recovered/Not Resolved]
  - Gastroenteritis viral [Unknown]
  - Faeces discoloured [Recovered/Resolved]
  - Pyrexia [Recovered/Resolved]
  - Haematochezia [Recovered/Resolved]
  - Hypophagia [Unknown]

NARRATIVE: CASE EVENT DATE: 20150505
